FAERS Safety Report 8660762 (Version 5)
Quarter: 2018Q3

REPORT INFORMATION
  Report Type: Spontaneous
  Country: US (occurrence: US)
  Receive Date: 20120711
  Receipt Date: 20180817
  Transmission Date: 20181010
  Serious: Yes (Hospitalization, Disabling, Other)
  Sender: FDA-Public Use
  Company Number: US-009507513-1207USA001650

PATIENT
  Sex: Female

DRUGS (3)
  1. FOSAMAX [Suspect]
     Active Substance: ALENDRONATE SODIUM
     Indication: OSTEOPENIA
  2. FOSAMAX [Suspect]
     Active Substance: ALENDRONATE SODIUM
     Indication: OSTEOPOROSIS
     Dosage: 70 MG, QW
     Route: 048
     Dates: start: 2001, end: 2005
  3. SYNTHROID [Concomitant]
     Active Substance: LEVOTHYROXINE SODIUM
     Indication: HYPOTHYROIDISM
     Dosage: UNK
     Route: 065
     Dates: start: 1992

REACTIONS (15)
  - Osteoarthritis [Unknown]
  - Groin pain [Not Recovered/Not Resolved]
  - Hyponatraemia [Unknown]
  - Transient ischaemic attack [Unknown]
  - Confusional state [Unknown]
  - Drug hypersensitivity [Unknown]
  - Fall [Unknown]
  - Intervertebral disc degeneration [Unknown]
  - Hyperlipidaemia [Unknown]
  - Hypernatraemia [Unknown]
  - Knee arthroplasty [Unknown]
  - Femur fracture [Unknown]
  - Urinary retention [Unknown]
  - Spinal osteoarthritis [Unknown]
  - Hypertension [Unknown]

NARRATIVE: CASE EVENT DATE: 20100326
